FAERS Safety Report 5894097-X (Version None)
Quarter: 2008Q3

REPORT INFORMATION
  Report Type: 
  Country: None (occurrence: None)
  Receive Date: 20080923
  Receipt Date: 20080505
  Transmission Date: 20090109
  Serious: Yes (Hospitalization, Disabling, Other)
  Sender: FDA-Public Use
  Company Number: US-ASTRAZENECA-2008AC00448

PATIENT
  Age: 35 Year
  Sex: Female

DRUGS (5)
  1. SEROQUEL [Suspect]
     Dosage: TAKEN AT NIGHT
     Route: 048
  2. SEROQUEL [Suspect]
     Dosage: DOSE INCREASED APPROX. 2 WEEKS BEFORE ADMISSION. TAKEN AT NIGHT.
     Route: 048
  3. PHENOBARBITAL TAB [Concomitant]
  4. DEPAKOTE [Concomitant]
  5. OXYBUTYIN CHLORIDE [Concomitant]

REACTIONS (1)
  - RHABDOMYOLYSIS [None]
